FAERS Safety Report 22760373 (Version 4)
Quarter: 2024Q2

REPORT INFORMATION
  Report Type: Spontaneous
  Country: CA (occurrence: CA)
  Receive Date: 20230728
  Receipt Date: 20240409
  Transmission Date: 20240716
  Serious: Yes (Other)
  Sender: FDA-Public Use
  Company Number: CA-PFIZER INC-202300261158

PATIENT
  Age: 64 Year
  Sex: Female

DRUGS (5)
  1. ABRILADA [Suspect]
     Active Substance: ADALIMUMAB-AFZB
     Indication: Rheumatoid arthritis
     Dosage: 40 MG EVERY 2 WEEKS, PREFILLED PEN
     Route: 058
     Dates: start: 20230428
  2. ABRILADA [Suspect]
     Active Substance: ADALIMUMAB-AFZB
     Dosage: 40 MG EVERY 2 WEEKS, PREFILLED PEN
     Route: 058
     Dates: start: 202402
  3. HYDROXYCHLOROQUINE [Concomitant]
     Active Substance: HYDROXYCHLOROQUINE
     Dosage: 1 DF
  4. METHOTREXATE [Concomitant]
     Active Substance: METHOTREXATE
     Dosage: 1 DF
  5. SHINGRIX [Concomitant]
     Active Substance: RECOMBINANT VARICELLA ZOSTER VIRUS (VZV) GLYCOPROTEIN E
     Dosage: UNK (HER 2ND SHINGRIX DOSE)
     Dates: start: 20230725, end: 20230725

REACTIONS (13)
  - Road traffic accident [Not Recovered/Not Resolved]
  - Fall [Not Recovered/Not Resolved]
  - Concussion [Not Recovered/Not Resolved]
  - Arthralgia [Not Recovered/Not Resolved]
  - Coccydynia [Not Recovered/Not Resolved]
  - Headache [Not Recovered/Not Resolved]
  - Post-traumatic neck syndrome [Not Recovered/Not Resolved]
  - Acne [Unknown]
  - Pain in extremity [Unknown]
  - Grip strength decreased [Unknown]
  - Muscular weakness [Unknown]
  - Increased tendency to bruise [Unknown]
  - Contusion [Unknown]

NARRATIVE: CASE EVENT DATE: 20230101
